FAERS Safety Report 9693151 (Version 2)
Quarter: 2014Q1

REPORT INFORMATION
  Report Type: Spontaneous
  Country: FR (occurrence: FR)
  Receive Date: 20131118
  Receipt Date: 20140318
  Transmission Date: 20141002
  Serious: Yes (Other)
  Sender: FDA-Public Use
  Company Number: FR-SA-2013SA116735

PATIENT
  Sex: 0

DRUGS (1)
  1. FASTURTEC [Suspect]
     Indication: PRODUCT USED FOR UNKNOWN INDICATION
     Route: 058
     Dates: start: 20131108, end: 20131108

REACTIONS (2)
  - Incorrect route of drug administration [Unknown]
  - Wrong technique in drug usage process [Unknown]
